FAERS Safety Report 10985140 (Version 1)
Quarter: 2015Q2

REPORT INFORMATION
  Report Type: Spontaneous
  Country: US (occurrence: None)
  Receive Date: 20150403
  Receipt Date: 20150403
  Transmission Date: 20150821
  Serious: Yes (Life-Threatening, Other)
  Sender: FDA-Public Use
  Company Number: None

PATIENT
  Age: 53 Year
  Sex: Female
  Weight: 59.88 kg

DRUGS (3)
  1. BUPIVACAINE\FENTANYL CITRATE [Suspect]
     Active Substance: BUPIVACAINE\FENTANYL CITRATE
     Dates: start: 20150121, end: 20150216
  2. BUPIVACAINE\FENTANYL CITRATE [Suspect]
     Active Substance: BUPIVACAINE\FENTANYL CITRATE
     Indication: PAIN
     Dates: start: 20150121, end: 20150216
  3. MORPHINE SULFATE. [Suspect]
     Active Substance: MORPHINE SULFATE

REACTIONS (6)
  - Blood pressure decreased [None]
  - Rash [None]
  - Drug dispensing error [None]
  - Vertigo [None]
  - Gait disturbance [None]
  - Wrong drug administered [None]

NARRATIVE: CASE EVENT DATE: 20150121
